FAERS Safety Report 7783761-3 (Version None)
Quarter: 2011Q3

REPORT INFORMATION
  Report Type: 
  Country: None (occurrence: None)
  Receive Date: 20110928
  Receipt Date: 20110921
  Transmission Date: 20111222
  Serious: Yes (Hospitalization, Other)
  Sender: FDA-Public Use
  Company Number: SE-ELI_LILLY_AND_COMPANY-SE201108003216

PATIENT
  Sex: Male

DRUGS (7)
  1. LOSAZID [Concomitant]
     Dosage: 1 DF, QD
     Route: 048
     Dates: start: 20110623
  2. BISOPROLOL FUMARATE [Concomitant]
  3. BYETTA [Suspect]
     Dosage: UNK UNK, QD
     Route: 058
     Dates: start: 20110623
  4. METFORMIN HCL [Concomitant]
     Indication: DIABETES MELLITUS
     Dosage: 2.5 G, QD
     Route: 048
     Dates: start: 20110623
  5. FELODIPINE [Concomitant]
  6. SIMVASTATIN [Concomitant]
  7. ASPIRIN [Concomitant]

REACTIONS (2)
  - RENAL FAILURE ACUTE [None]
  - HYPERKALAEMIA [None]
